FAERS Safety Report 9947970 (Version 2)
Quarter: 2014Q1

REPORT INFORMATION
  Report Type: Report from Study
  Country: US (occurrence: US)
  Receive Date: 20140303
  Receipt Date: 20140303
  Transmission Date: 20141002
  Serious: No
  Sender: FDA-Public Use
  Company Number: US-ABBVIE-13P-163-1050684-00

PATIENT
  Age: 74 Year
  Sex: Female

DRUGS (12)
  1. HUMIRA [Suspect]
     Indication: CROHN^S DISEASE
     Dates: start: 20121022, end: 20130110
  2. PENTASA [Concomitant]
     Indication: CROHN^S DISEASE
     Dosage: 4 DAILY
  3. PRILOSEC [Concomitant]
     Indication: GASTROOESOPHAGEAL REFLUX DISEASE
  4. PRILOSEC [Concomitant]
     Indication: HIATUS HERNIA
  5. PRILOSEC [Concomitant]
     Indication: DUODENAL ULCER
  6. TRAZODONE [Concomitant]
     Indication: INSOMNIA
     Dosage: AT BEDTIME
  7. CYMBALTA [Concomitant]
     Indication: MYALGIA
  8. VITAMIN B12 [Concomitant]
     Indication: CROHN^S DISEASE
     Dosage: SHOT
     Route: 050
  9. VITAMIN D [Concomitant]
     Indication: PRODUCT USED FOR UNKNOWN INDICATION
  10. CALCIUM [Concomitant]
     Indication: PRODUCT USED FOR UNKNOWN INDICATION
  11. MULTIVITAMINS [Concomitant]
     Indication: PRODUCT USED FOR UNKNOWN INDICATION
  12. VICODIN [Concomitant]
     Indication: PAIN
     Dosage: 7.5/325MG

REACTIONS (6)
  - Red blood cell sedimentation rate decreased [Unknown]
  - Tooth infection [Not Recovered/Not Resolved]
  - Myalgia [Unknown]
  - Crohn^s disease [Unknown]
  - Sinusitis [Unknown]
  - Retinal disorder [Unknown]
